FAERS Safety Report 23662420 (Version 3)
Quarter: 2024Q2

REPORT INFORMATION
  Report Type: Spontaneous
  Country: US (occurrence: US)
  Receive Date: 20240322
  Receipt Date: 20240506
  Transmission Date: 20240716
  Serious: No
  Sender: FDA-Public Use
  Company Number: US-PFIZER INC-202400065163

PATIENT
  Age: 10 Year
  Sex: Male

DRUGS (1)
  1. GENOTROPIN [Suspect]
     Active Substance: SOMATROPIN
     Dosage: 1.4MG DAILY
     Dates: start: 202401

REACTIONS (4)
  - Drug dose omission by device [Unknown]
  - Device maintenance issue [Unknown]
  - Device physical property issue [Unknown]
  - Device information output issue [Unknown]
